FAERS Safety Report 7002124-1 (Version None)
Quarter: 2010Q3

REPORT INFORMATION
  Report Type: 
  Country: None (occurrence: None)
  Receive Date: 20100920
  Receipt Date: 20090721
  Transmission Date: 20110219
  Serious: Yes (Other)
  Sender: FDA-Public Use
  Company Number: US-ASTRAZENECA-2007UW05804

PATIENT
  Age: 80 Year
  Sex: Female

DRUGS (14)
  1. SEROQUEL [Suspect]
     Route: 048
     Dates: start: 20040323
  2. BETAMETHASONE [Concomitant]
     Dates: start: 20040115
  3. COZAAR [Concomitant]
     Dates: start: 20040206
  4. EFFEXOR XR [Concomitant]
     Route: 048
     Dates: start: 20040302
  5. COREG [Concomitant]
     Route: 048
     Dates: start: 20040306
  6. COREG [Concomitant]
     Route: 048
     Dates: start: 20051029
  7. DEMADEX [Concomitant]
     Dosage: 20 MG AT EACH MORNING, P.M. IF REQUIRED
     Dates: start: 20040323
  8. PROTONIX [Concomitant]
     Dates: start: 20040323
  9. XOPENEX [Concomitant]
     Dosage: 125 P.O. Q. 8 H
     Route: 048
     Dates: start: 20051029
  10. LANOXIN [Concomitant]
     Dates: start: 20051029
  11. EXELON [Concomitant]
     Route: 048
     Dates: start: 20051029
  12. SINEMET [Concomitant]
     Dates: start: 20051029
  13. COUMADIN [Concomitant]
     Dates: start: 20051029
  14. ELAVIL [Concomitant]
     Route: 048
     Dates: start: 20051029

REACTIONS (4)
  - DIABETES MELLITUS [None]
  - KETOACIDOSIS [None]
  - PANCREATITIS [None]
  - TYPE 2 DIABETES MELLITUS [None]
